FAERS Safety Report 25445981 (Version 1)
Quarter: 2025Q2

REPORT INFORMATION
  Report Type: Spontaneous
  Country: US (occurrence: US)
  Receive Date: 20250617
  Receipt Date: 20250617
  Transmission Date: 20250717
  Serious: No
  Sender: ABBVIE
  Company Number: US-ABBVIE-6327269

PATIENT
  Age: 27 Year
  Sex: Male

DRUGS (1)
  1. VRAYLAR [Suspect]
     Active Substance: CARIPRAZINE
     Indication: Product used for unknown indication
     Route: 048
     Dates: start: 202505, end: 202505

REACTIONS (2)
  - Ulcer [Unknown]
  - Parkinsonism [Unknown]

NARRATIVE: CASE EVENT DATE: 20250101
